FAERS Safety Report 6717705-X (Version None)
Quarter: 2010Q2

REPORT INFORMATION
  Report Type: 
  Country: None (occurrence: None)
  Receive Date: 20100510
  Receipt Date: 20100507
  Transmission Date: 20101027
  Serious: Yes (Death, Other)
  Sender: FDA-Public Use
  Company Number: TR-PFIZER INC-2009311839

PATIENT
  Age: 54 Year
  Sex: Male
  Weight: 73 kg

DRUGS (13)
  1. ANIDULAFUNGIN [Suspect]
     Indication: SYSTEMIC CANDIDA
     Dosage: 100 MG, 1X/DAY
     Route: 042
     Dates: start: 20091210, end: 20091215
  2. PETHIDINE HYDROCHLORIDE [Concomitant]
     Dosage: UNK
     Route: 042
     Dates: start: 20091126
  3. LORAZEPAM [Concomitant]
     Dosage: UNK
     Route: 048
     Dates: start: 20091126
  4. FENTANYL [Concomitant]
     Dosage: UNK
     Route: 062
     Dates: start: 20091126
  5. METRONIDAZOLE [Concomitant]
     Dosage: UNK
     Route: 042
     Dates: start: 20091126
  6. GRANISETRON [Concomitant]
     Dosage: UNK
     Route: 042
     Dates: start: 20091126
  7. FILGRASTIM [Concomitant]
     Dosage: UNK
     Route: 058
     Dates: start: 20091126
  8. TEICOPLANIN [Concomitant]
     Dosage: UNK
     Route: 042
     Dates: start: 20091208
  9. IMIPENEM [Concomitant]
     Dosage: UNK
     Route: 042
     Dates: start: 20091130
  10. ONDANSETRON [Concomitant]
     Dosage: UNK
     Route: 042
     Dates: start: 20091126
  11. SUCRALFATE [Concomitant]
     Dosage: UNK
     Route: 042
     Dates: start: 20091126
  12. PARACETAMOL [Concomitant]
     Dosage: UNK
     Route: 042
     Dates: start: 20091126
  13. ESCITALOPRAM [Concomitant]
     Dosage: UNK
     Route: 048
     Dates: start: 20091126

REACTIONS (2)
  - CONVULSION [None]
  - DEATH [None]
